FAERS Safety Report 8723810 (Version 2)
Quarter: 2012Q4

REPORT INFORMATION
  Report Type: 
  Country: BR (occurrence: BR)
  Receive Date: 20120815
  Receipt Date: 20120907
  Transmission Date: 20130627
  Serious: Yes (Other)
  Sender: FDA-Public Use
  Company Number: BR-US-EMD SERONO, INC.-7153380

PATIENT
  Sex: Female

DRUGS (1)
  1. REBIF [Suspect]
     Route: 065

REACTIONS (3)
  - Bronchiolitis [Recovered/Resolved]
  - Normal newborn [Recovered/Resolved]
  - Exposure via father [Recovered/Resolved]
